FAERS Safety Report 19224523 (Version 1)
Quarter: 2021Q2

REPORT INFORMATION
  Report Type: Spontaneous
  Country: US (occurrence: US)
  Receive Date: 20210505
  Receipt Date: 20210505
  Transmission Date: 20210717
  Serious: No
  Sender: FDA-Public Use
  Company Number: US-ROCHE-2625197

PATIENT
  Age: 82 Year
  Sex: Male
  Weight: 108.96 kg

DRUGS (3)
  1. ELIQUIS [Concomitant]
     Active Substance: APIXABAN
  2. ESBRIET [Suspect]
     Active Substance: PIRFENIDONE
     Indication: LUNG DISORDER
     Dosage: YES
     Route: 048
     Dates: start: 202003
  3. VITAMIN B12 [Concomitant]
     Active Substance: CYANOCOBALAMIN
     Dates: start: 2007

REACTIONS (3)
  - Intentional product use issue [Unknown]
  - Off label use [Unknown]
  - Rash [Not Recovered/Not Resolved]

NARRATIVE: CASE EVENT DATE: 202003
